FAERS Safety Report 10035059 (Version 1)
Quarter: 2014Q1

REPORT INFORMATION
  Report Type: Spontaneous
  Country: US (occurrence: US)
  Receive Date: 20140325
  Receipt Date: 20140325
  Transmission Date: 20141002
  Serious: Yes (Hospitalization, Other)
  Sender: FDA-Public Use
  Company Number: US-ACTAVIS-2014-05089

PATIENT
  Age: 25 Year
  Sex: Female

DRUGS (9)
  1. TACROLIMUS (WATSON LABORATORIES) [Suspect]
     Indication: IMMUNOSUPPRESSANT DRUG THERAPY
     Dosage: 8.5 MG, DAILY
     Route: 065
  2. TACROLIMUS (WATSON LABORATORIES) [Suspect]
     Indication: LUNG TRANSPLANT
  3. PREDNISONE [Concomitant]
     Indication: IMMUNOSUPPRESSANT DRUG THERAPY
     Dosage: 10 MG, DAILY
     Route: 065
  4. PREDNISONE [Concomitant]
     Indication: LUNG TRANSPLANT
  5. MYCOPHENOLATE [Concomitant]
     Indication: IMMUNOSUPPRESSANT DRUG THERAPY
     Dosage: 720 MG, BID
     Route: 065
  6. MYCOPHENOLATE [Concomitant]
     Indication: LUNG TRANSPLANT
  7. SIROLIMUS [Concomitant]
     Indication: IMMUNOSUPPRESSANT DRUG THERAPY
     Dosage: 3 MG, BID
     Route: 065
  8. SIROLIMUS [Concomitant]
     Indication: LUNG TRANSPLANT
  9. TRIMETHOPRIM SULFAMETHOXAZOLE [Concomitant]
     Indication: PROPHYLAXIS
     Dosage: UNKNOWN
     Route: 065

REACTIONS (1)
  - Thrombotic microangiopathy [Recovered/Resolved]
